FAERS Safety Report 10158054 (Version 1)
Quarter: 2014Q2

REPORT INFORMATION
  Report Type: Spontaneous
  Country: FR (occurrence: FR)
  Receive Date: 20140507
  Receipt Date: 20140507
  Transmission Date: 20141212
  Serious: Yes (Hospitalization, Other)
  Sender: FDA-Public Use
  Company Number: FR-PFIZER INC-2014123399

PATIENT
  Age: 20 Year
  Sex: Male

DRUGS (1)
  1. MEDROL [Suspect]
     Dosage: 16 MG, 3X/DAY
     Route: 048
     Dates: start: 201404, end: 2014

REACTIONS (5)
  - Hypokalaemia [Recovered/Resolved]
  - Myopathy [Recovered/Resolved]
  - Guillain-Barre syndrome [Recovered/Resolved]
  - Vomiting [Unknown]
  - Abdominal pain [Unknown]
